FAERS Safety Report 13065612 (Version 2)
Quarter: 2017Q4

REPORT INFORMATION
  Report Type: Spontaneous
  Country: MX (occurrence: MX)
  Receive Date: 20161227
  Receipt Date: 20171129
  Transmission Date: 20180320
  Serious: Yes (Death)
  Sender: FDA-Public Use
  Company Number: MX-PFIZER INC-2016596391

PATIENT
  Age: 83 Year
  Sex: Female

DRUGS (3)
  1. PRISTIQ EXTENDED-RELEASE [Suspect]
     Active Substance: DESVENLAFAXINE SUCCINATE
     Dosage: UNK
  2. LYRICA [Suspect]
     Active Substance: PREGABALIN
  3. ERANZ [Suspect]
     Active Substance: DONEPEZIL HYDROCHLORIDE

REACTIONS (2)
  - Frontotemporal dementia [Fatal]
  - Pneumonia [Fatal]
